FAERS Safety Report 8143867-6 (Version None)
Quarter: 2012Q1

REPORT INFORMATION
  Report Type: 
  Country: None (occurrence: None)
  Receive Date: 20120217
  Receipt Date: 20120213
  Transmission Date: 20120608
  Serious: Yes (Other)
  Sender: FDA-Public Use
  Company Number: LU-PFIZER INC-2012038203

PATIENT
  Age: 53 Year
  Sex: Male

DRUGS (1)
  1. CYTOSAR-U [Suspect]
     Dosage: 396 MG, UNK

REACTIONS (1)
  - PULMONARY TOXICITY [None]
